FAERS Safety Report 11757809 (Version 2)
Quarter: 2016Q1

REPORT INFORMATION
  Report Type: Spontaneous
  Country: US (occurrence: US)
  Receive Date: 20151120
  Receipt Date: 20160111
  Transmission Date: 20160525
  Serious: No
  Sender: FDA-Public Use
  Company Number: US-CELGENEUS-USA-2015112594

PATIENT
  Sex: Male
  Weight: 162.99 kg

DRUGS (1)
  1. OTEZLA [Suspect]
     Active Substance: APREMILAST
     Indication: RHEUMATOID ARTHRITIS
     Dosage: 60 MILLIGRAM
     Route: 048
     Dates: start: 20151015

REACTIONS (5)
  - Drug dose omission [Unknown]
  - Nausea [Unknown]
  - Road traffic accident [Unknown]
  - Headache [Unknown]
  - Neck injury [Unknown]

NARRATIVE: CASE EVENT DATE: 2015
